FAERS Safety Report 10972020 (Version 13)
Quarter: 2015Q4

REPORT INFORMATION
  Report Type: Report from Study
  Country: LU (occurrence: LU)
  Receive Date: 20150331
  Receipt Date: 20151217
  Transmission Date: 20160304
  Serious: Yes (Hospitalization)
  Sender: FDA-Public Use
  Company Number: LU-ABBVIE-15P-098-1366439-00

PATIENT
  Age: 78 Year
  Sex: Male
  Weight: 55 kg

DRUGS (20)
  1. DUODOPA [Suspect]
     Active Substance: CARBIDOPA\LEVODOPA
     Dosage: AM=6ML;CD=1.6ML/HR DURING 16HRS;ED=1.5ML
     Route: 050
     Dates: start: 201504, end: 20150430
  2. REQUIP [Concomitant]
     Active Substance: ROPINIROLE HYDROCHLORIDE
     Indication: PARKINSON^S DISEASE
     Route: 048
  3. CALCI-CHEW [Concomitant]
     Indication: PRODUCT USED FOR UNKNOWN INDICATION
  4. DUODOPA [Suspect]
     Active Substance: CARBIDOPA\LEVODOPA
     Dosage: AM=6ML, CD=1.5ML/H FOR 16HRS, ED=1.5ML
     Route: 050
     Dates: start: 20141022, end: 20150326
  5. DUODOPA [Suspect]
     Active Substance: CARBIDOPA\LEVODOPA
     Dosage: AM DOSE=6ML, CD=2.3ML/H FOR 16HRS AND ED=1.5ML
     Route: 050
     Dates: start: 20150915
  6. REQUIP [Concomitant]
     Active Substance: ROPINIROLE HYDROCHLORIDE
     Route: 048
  7. REQUIP [Concomitant]
     Active Substance: ROPINIROLE HYDROCHLORIDE
     Route: 048
  8. PK MERZ [Concomitant]
     Active Substance: AMANTADINE SULFATE
     Indication: PARKINSON^S DISEASE
     Route: 048
  9. DUODOPA [Suspect]
     Active Substance: CARBIDOPA\LEVODOPA
     Dosage: AM = 6ML , CD=1.6/HR DURING 16HRS, ED = 1.5 ML
     Route: 050
     Dates: start: 20150326, end: 201504
  10. STILNOCT [Concomitant]
     Active Substance: ZOLPIDEM TARTRATE
     Indication: PRODUCT USED FOR UNKNOWN INDICATION
     Dosage: IN THE EVENING
  11. DUODOPA [Suspect]
     Active Substance: CARBIDOPA\LEVODOPA
     Dosage: AM DOSE=6ML, CD=2.3ML/H FOR 16HRS AND ED=1.5ML
     Route: 050
     Dates: start: 20150827
  12. REQUIP [Concomitant]
     Active Substance: ROPINIROLE HYDROCHLORIDE
     Indication: PARKINSON^S DISEASE
     Route: 048
  13. PROLOPA HBS [Concomitant]
     Active Substance: BENSERAZIDE\LEVODOPA
     Indication: PRODUCT USED FOR UNKNOWN INDICATION
     Dosage: FROM STRENGTH : 100MG/25MG IN THE EVENING
  14. MAGNESIUM [Concomitant]
     Active Substance: MAGNESIUM
     Indication: PRODUCT USED FOR UNKNOWN INDICATION
  15. DUODOPA [Suspect]
     Active Substance: CARBIDOPA\LEVODOPA
     Dosage: DOSES CONTINUOUSLY MONITORED AND ADJUSTED
     Route: 050
     Dates: start: 20140204, end: 20141022
  16. DUODOPA [Suspect]
     Active Substance: CARBIDOPA\LEVODOPA
     Dosage: AM = 6 ML, CD = 2.1 ML/H DURING 16H, ED = 1.5 ML
     Route: 050
     Dates: start: 20150430, end: 20150827
  17. DUODOPA [Suspect]
     Active Substance: CARBIDOPA\LEVODOPA
     Indication: PARKINSON^S DISEASE
     Dosage: AM=5.6ML, CD=2ML/HR DURING 16HRS, ED=1ML
     Route: 050
     Dates: start: 20140131, end: 20140204
  18. DUODOPA [Suspect]
     Active Substance: CARBIDOPA\LEVODOPA
     Dosage: AM DOSE=6ML, CD=1.5ML/H FOR 16HRS AND ED=1.5ML
     Route: 050
     Dates: start: 20150915
  19. OMEP [Concomitant]
     Active Substance: OMEPRAZOLE
     Indication: PARKINSON^S DISEASE
     Route: 048
  20. DIFLUCAN [Concomitant]
     Active Substance: FLUCONAZOLE
     Indication: PRODUCT USED FOR UNKNOWN INDICATION
     Route: 050
     Dates: start: 201505

REACTIONS (10)
  - General physical health deterioration [Not Recovered/Not Resolved]
  - Asthenia [Recovering/Resolving]
  - Pneumonia [Not Recovered/Not Resolved]
  - Dysstasia [Recovering/Resolving]
  - Apathy [Unknown]
  - Enteral nutrition [Not Recovered/Not Resolved]
  - Depersonalisation [Unknown]
  - Speech disorder [Unknown]
  - Weight decreased [Recovering/Resolving]
  - Dysphagia [Unknown]

NARRATIVE: CASE EVENT DATE: 201503
